FAERS Safety Report 20941922 (Version 1)
Quarter: 2022Q2

REPORT INFORMATION
  Report Type: Spontaneous
  Country: IN (occurrence: IN)
  Receive Date: 20220610
  Receipt Date: 20220610
  Transmission Date: 20220721
  Serious: Yes (Hospitalization)
  Sender: FDA-Public Use
  Company Number: IN-STRIDES ARCOLAB LIMITED-2022SP006684

PATIENT
  Age: 12 Year
  Sex: Female

DRUGS (2)
  1. TACROLIMUS [Suspect]
     Active Substance: TACROLIMUS
     Indication: Graft versus host disease
     Dosage: UNK
     Route: 065
  2. PREDNISOLONE [Suspect]
     Active Substance: PREDNISOLONE
     Indication: Graft versus host disease
     Dosage: PREDNISOLONE DOSE WAS TAPERED
     Route: 065

REACTIONS (5)
  - Multisystem inflammatory syndrome [Unknown]
  - Deep vein thrombosis [Unknown]
  - Cytopenia [Unknown]
  - COVID-19 [Unknown]
  - Off label use [Unknown]
